FAERS Safety Report 6425327-3 (Version None)
Quarter: 2009Q4

REPORT INFORMATION
  Report Type: 
  Country: None (occurrence: None)
  Receive Date: 20091103
  Receipt Date: 20091028
  Transmission Date: 20100525
  Serious: Yes (Hospitalization, Congenital Anomaly)
  Sender: FDA-Public Use
  Company Number: A0702276A

PATIENT
  Sex: Male
  Weight: 0.8 kg

DRUGS (2)
  1. PAXIL CR [Suspect]
     Indication: ANXIETY
     Dates: start: 20030701, end: 20031201
  2. VITAMIN TAB [Concomitant]

REACTIONS (11)
  - ADJUSTMENT DISORDER [None]
  - ATRIAL SEPTAL DEFECT [None]
  - BLINDNESS [None]
  - BRONCHOPULMONARY DYSPLASIA [None]
  - DEVELOPMENTAL DELAY [None]
  - DRUG EXPOSURE DURING PREGNANCY [None]
  - DYSMORPHISM [None]
  - LUNG DISORDER [None]
  - PERSISTENT FOETAL CIRCULATION [None]
  - PREMATURE BABY [None]
  - RETINOPATHY OF PREMATURITY [None]
